FAERS Safety Report 22108253 (Version 1)
Quarter: 2023Q1

REPORT INFORMATION
  Report Type: Spontaneous
  Country: US (occurrence: US)
  Receive Date: 20230317
  Receipt Date: 20230317
  Transmission Date: 20230418
  Serious: No
  Sender: FDA-Public Use
  Company Number: US-SA-SAC20230313000323

PATIENT
  Sex: Female

DRUGS (1)
  1. DUPIXENT [Suspect]
     Active Substance: DUPILUMAB
     Indication: Dermatitis atopic
     Dosage: 300 MG, QOW
     Route: 058
     Dates: start: 20230131

REACTIONS (4)
  - Bacterial infection [Recovering/Resolving]
  - Malaise [Recovering/Resolving]
  - Back pain [Recovering/Resolving]
  - Rash pruritic [Recovering/Resolving]
